FAERS Safety Report 25003433 (Version 1)
Quarter: 2025Q1

REPORT INFORMATION
  Report Type: Other
  Country: BR (occurrence: BR)
  Receive Date: 20250224
  Receipt Date: 20250224
  Transmission Date: 20250408
  Serious: Yes (Death, Hospitalization, Other)
  Sender: ANI
  Company Number: BR-ANIPHARMA-015679

PATIENT
  Age: 15 Year
  Sex: Female
  Weight: 54 kg

DRUGS (6)
  1. VALPROIC ACID [Suspect]
     Active Substance: VALPROIC ACID
     Indication: Completed suicide
     Route: 048
  2. QUETIAPINE [Concomitant]
     Active Substance: QUETIAPINE
     Indication: Completed suicide
     Route: 048
  3. AMIODARONE [Concomitant]
     Active Substance: AMIODARONE
     Indication: Arrhythmia
  4. NOREPINEPHRINE [Concomitant]
     Active Substance: NOREPINEPHRINE
     Indication: Hypovolaemic shock
  5. HUMAN PLASMA [Concomitant]
     Active Substance: HUMAN PLASMA
     Indication: Hypovolaemic shock
  6. DOBUTAMINE [Concomitant]
     Active Substance: DOBUTAMINE HYDROCHLORIDE
     Indication: Hypovolaemic shock

REACTIONS (4)
  - Cardio-respiratory arrest [Fatal]
  - Intentional product misuse [Fatal]
  - Intentional overdose [Fatal]
  - Suicide attempt [Fatal]
